FAERS Safety Report 5622585-X (Version None)
Quarter: 2008Q1

REPORT INFORMATION
  Report Type: 
  Country: None (occurrence: None)
  Receive Date: 20080208
  Receipt Date: 20080208
  Transmission Date: 20080703
  Serious: No
  Sender: FDA-Public Use
  Company Number: None

PATIENT
  Age: 51 Year
  Sex: Male
  Weight: 175.9956 kg

DRUGS (1)
  1. INOMAX [Suspect]
     Indication: VASODILATION PROCEDURE
     Dosage: 1 PPM;CONT;INH
     Route: 055
     Dates: start: 20060221

REACTIONS (2)
  - DEVICE MALFUNCTION [None]
  - OXYGEN SATURATION DECREASED [None]
